FAERS Safety Report 11628456 (Version 1)
Quarter: 2015Q4

REPORT INFORMATION
  Report Type: Spontaneous
  Country: US (occurrence: None)
  Receive Date: 20151013
  Receipt Date: 20151013
  Transmission Date: 20160304
  Serious: Yes (Disabling)
  Sender: FDA-Public Use
  Company Number: None

PATIENT
  Age: 44 Year
  Sex: Female
  Weight: 58.97 kg

DRUGS (1)
  1. LEVAQUIN [Suspect]
     Active Substance: LEVOFLOXACIN
     Dosage: 5 PILLS
     Dates: start: 20141112, end: 20141114

REACTIONS (2)
  - Cervical spinal stenosis [None]
  - Pain [None]

NARRATIVE: CASE EVENT DATE: 20141112
